FAERS Safety Report 11374757 (Version 1)
Quarter: 2015Q3

REPORT INFORMATION
  Report Type: Spontaneous
  Country: US (occurrence: None)
  Receive Date: 20150812
  Receipt Date: 20150812
  Transmission Date: 20151125
  Serious: Yes (Disabling)
  Sender: FDA-Public Use
  Company Number: None

PATIENT
  Age: 71 Year
  Sex: Female
  Weight: 90.72 kg

DRUGS (4)
  1. HRT [Concomitant]
     Active Substance: UNSPECIFIED INGREDIENT
  2. SELENIUM [Concomitant]
     Active Substance: SELENIUM
  3. VASCEPA [Suspect]
     Active Substance: ETHYL ICOSAPENTATE
     Indication: BLOOD TRIGLYCERIDES INCREASED
     Route: 048
     Dates: start: 20140710, end: 20150722
  4. ATENALOL [Concomitant]

REACTIONS (7)
  - Fatigue [None]
  - Musculoskeletal pain [None]
  - Arthralgia [None]
  - Back pain [None]
  - Pain in extremity [None]
  - Musculoskeletal disorder [None]
  - Quality of life decreased [None]

NARRATIVE: CASE EVENT DATE: 20150722
